FAERS Safety Report 9677558 (Version 1)
Quarter: 2013Q4

REPORT INFORMATION
  Report Type: Spontaneous
  Country: TH (occurrence: TH)
  Receive Date: 20131108
  Receipt Date: 20131108
  Transmission Date: 20140711
  Serious: Yes (Death, Hospitalization)
  Sender: FDA-Public Use
  Company Number: TH-PERRIGO-13TH011129

PATIENT
  Age: 47 Year
  Sex: Female

DRUGS (1)
  1. ERYTHROMYCIN USP RX 2% ERYTHRA-DERM 8F6 [Suspect]
     Indication: PRODUCT USED FOR UNKNOWN INDICATION
     Dosage: UNK

REACTIONS (1)
  - Stevens-Johnson syndrome [Fatal]
